FAERS Safety Report 4844637-4 (Version None)
Quarter: 2005Q4

REPORT INFORMATION
  Report Type: 
  Country: None (occurrence: None)
  Receive Date: 20051205
  Receipt Date: 20051018
  Transmission Date: 20060501
  Serious: Yes (Hospitalization)
  Sender: FDA-Public Use
  Company Number: ES-AMGEN-UK154709

PATIENT
  Sex: Male

DRUGS (2)
  1. PALIFERMIN [Suspect]
     Indication: MUCOSAL INFLAMMATION
     Route: 042
     Dates: start: 20050930
  2. CISPLATIN [Suspect]
     Route: 065

REACTIONS (4)
  - DEHYDRATION [None]
  - DRUG DISPENSING ERROR [None]
  - RENAL FAILURE ACUTE [None]
  - VOMITING [None]
